FAERS Safety Report 8605544-4 (Version None)
Quarter: 2012Q3

REPORT INFORMATION
  Report Type: 
  Country: None (occurrence: None)
  Receive Date: 20120820
  Receipt Date: 20120813
  Transmission Date: 20120928
  Serious: Yes (Disabling)
  Sender: FDA-Public Use
  Company Number: US-PFIZER INC-2012197638

PATIENT
  Age: 48 Year
  Sex: Female
  Weight: 70.3 kg

DRUGS (6)
  1. TOPROL-XL [Concomitant]
     Indication: SUPRAVENTRICULAR TACHYCARDIA
     Dosage: 100 MG, DAILY
  2. LYRICA [Suspect]
     Indication: FIBROMYALGIA
     Dosage: 75 MG, 3X/DAY
  3. SAVELLA [Suspect]
     Dosage: 12.5 MG, 2X/DAY
  4. LYRICA [Suspect]
     Dosage: 75 MG, 2X/DAY
  5. SAVELLA [Suspect]
     Indication: FIBROMYALGIA
     Dosage: 25 MG, 2X/DAY
  6. ESTRADIOL [Concomitant]
     Indication: HYSTERECTOMY
     Dosage: 1 MG, DAILY

REACTIONS (3)
  - ACCIDENT [None]
  - NECK PAIN [None]
  - PALPITATIONS [None]
